FAERS Safety Report 7012087-0 (Version None)
Quarter: 2010Q3

REPORT INFORMATION
  Report Type: 
  Country: None (occurrence: None)
  Receive Date: 20100924
  Receipt Date: 20100917
  Transmission Date: 20110219
  Serious: Yes (Hospitalization)
  Sender: FDA-Public Use
  Company Number: US-ELI_LILLY_AND_COMPANY-US201008002396

PATIENT
  Sex: Female

DRUGS (1)
  1. HUMATROPE [Suspect]
     Indication: GROWTH HORMONE DEFICIENCY

REACTIONS (5)
  - ANGER [None]
  - INSULIN-LIKE GROWTH FACTOR INCREASED [None]
  - OSTEOARTHRITIS [None]
  - PROCEDURAL PAIN [None]
  - TENDON INJURY [None]
